FAERS Safety Report 11696139 (Version 1)
Quarter: 2015Q4

REPORT INFORMATION
  Report Type: Report from Study
  Country: JP (occurrence: JP)
  Receive Date: 20151104
  Receipt Date: 20151104
  Transmission Date: 20160304
  Serious: Yes (Hospitalization, Other)
  Sender: FDA-Public Use
  Company Number: JP-SHIRE-JP201513473

PATIENT
  Age: 67 Year
  Sex: Male

DRUGS (18)
  1. ALLEGRA [Suspect]
     Active Substance: FEXOFENADINE HYDROCHLORIDE
     Indication: PRURITUS
     Dosage: 60 MG, 1X/DAY:QD
     Route: 048
  2. 405 (LANTHANUM CARBONATE) [Suspect]
     Active Substance: LANTHANUM CARBONATE
     Indication: HYPERPHOSPHATAEMIA
     Dosage: 750 MG, UNKNOWN (PER DAY)
     Route: 048
     Dates: start: 20140609
  3. IRBETAN [Suspect]
     Active Substance: IRBESARTAN
     Dosage: 200 MG, 1X/DAY:QD
     Route: 048
     Dates: start: 20140120
  4. TRAMCET [Suspect]
     Active Substance: ACETAMINOPHEN\TRAMADOL
     Indication: PAIN
     Dosage: 2 DF, 1X/DAY:QD
     Route: 048
  5. METHYCOBAL [Suspect]
     Active Substance: METHYLCOBALAMIN
     Indication: NEUROPATHY PERIPHERAL
     Dosage: 1500 ?G, 1X/DAY:QD
     Route: 048
  6. IRBETAN [Suspect]
     Active Substance: IRBESARTAN
     Indication: HYPERTENSION
     Dosage: 100 MG, 1X/DAY:QD
     Route: 048
     Dates: end: 20140120
  7. CONIEL [Suspect]
     Active Substance: BENIDIPINE HYDROCHLORIDE
     Indication: HYPERTENSION
     Dosage: 8 MG, 1X/DAY:QD
     Route: 048
  8. PARIET [Suspect]
     Active Substance: RABEPRAZOLE SODIUM
     Indication: GASTROOESOPHAGEAL REFLUX DISEASE
     Dosage: 10 MG, 1X/DAY:QD
     Route: 048
  9. EPOETIN ALFA [Suspect]
     Active Substance: ERYTHROPOIETIN
     Indication: NEPHROGENIC ANAEMIA
     Dosage: UNK, 1X/WEEK
     Route: 042
     Dates: start: 20140807
  10. FESIN                              /00023550/ [Suspect]
     Active Substance: IRON SUCROSE
     Dosage: 40 MG, 1X/WEEK
     Route: 042
     Dates: start: 20151023
  11. ADALAT [Suspect]
     Active Substance: NIFEDIPINE
     Indication: HYPERTENSION
     Dosage: 20 MG, 1X/DAY:QD
     Route: 048
     Dates: start: 20140203, end: 20140223
  12. DEPAS [Suspect]
     Active Substance: ETIZOLAM
     Indication: ANXIETY DISORDER
     Dosage: 0.5 MG, 1X/DAY:QD
     Route: 048
  13. FESIN                              /00023550/ [Suspect]
     Active Substance: IRON SUCROSE
     Indication: IRON DEFICIENCY ANAEMIA
     Dosage: 40 MG, 1X/WEEK
     Route: 042
     Dates: start: 20150618, end: 20150814
  14. ADALAT [Suspect]
     Active Substance: NIFEDIPINE
     Dosage: 40 MG, 1X/DAY:QD
     Route: 048
     Dates: start: 20140224
  15. ALFAROL [Suspect]
     Active Substance: ALFACALCIDOL
     Indication: CHRONIC KIDNEY DISEASE
     Dosage: 0.25 ?G, 1X/DAY:QD
     Route: 048
  16. GASMOTIN [Suspect]
     Active Substance: MOSAPRIDE CITRATE
     Indication: CHRONIC GASTRITIS
     Dosage: 15 MG, 1X/DAY:QD
     Route: 048
  17. CARDENALIN [Suspect]
     Active Substance: DOXAZOSIN MESYLATE
     Indication: HYPERTENSION
     Dosage: 1 MG, 1X/DAY:QD
     Route: 048
     Dates: start: 20150525
  18. ROZEREM [Suspect]
     Active Substance: RAMELTEON
     Indication: INSOMNIA
     Dosage: 8 MG, 1X/DAY:QD
     Route: 048

REACTIONS (1)
  - Lung neoplasm malignant [Recovering/Resolving]

NARRATIVE: CASE EVENT DATE: 20151001
